FAERS Safety Report 5105162-9 (Version None)
Quarter: 2006Q3

REPORT INFORMATION
  Report Type: 
  Country: None (occurrence: None)
  Receive Date: 20060914
  Receipt Date: 20060802
  Transmission Date: 20061208
  Serious: Yes (Hospitalization)
  Sender: FDA-Public Use
  Company Number: DE-ABBOTT-06P-062-0339436-00

PATIENT
  Sex: Male
  Weight: 24 kg

DRUGS (2)
  1. KLACID SAFT FORTE [Suspect]
     Indication: BRONCHITIS
     Route: 048
     Dates: start: 20060518, end: 20060520
  2. ACETYLCYSTEINE [Concomitant]
     Indication: BRONCHITIS
     Route: 048
     Dates: start: 20060518, end: 20060520

REACTIONS (9)
  - ABDOMINAL PAIN [None]
  - HEPATIC ENZYME INCREASED [None]
  - LYMPHADENOPATHY [None]
  - PALLOR [None]
  - RASH [None]
  - SKIN DISORDER [None]
  - TONSILLAR HYPERTROPHY [None]
  - TRANSAMINASES INCREASED [None]
  - VOMITING [None]
